FAERS Safety Report 12558820 (Version 1)
Quarter: 2016Q3

REPORT INFORMATION
  Report Type: Spontaneous
  Country: FR (occurrence: FR)
  Receive Date: 20160715
  Receipt Date: 20160715
  Transmission Date: 20161109
  Serious: Yes (Other)
  Sender: FDA-Public Use
  Company Number: FR-009507513-1607FRA005122

PATIENT
  Age: 25 Year
  Sex: Female

DRUGS (3)
  1. NORSET [Suspect]
     Active Substance: MIRTAZAPINE
     Indication: DEPRESSION
     Dosage: 3 DF, QD (IN THE EVENING)
     Route: 048
     Dates: start: 20160406, end: 20160406
  2. NORSET [Suspect]
     Active Substance: MIRTAZAPINE
     Dosage: 1 DF, QD (IN THE EVENING)
     Route: 048
     Dates: start: 20160408, end: 20160408
  3. NORSET [Suspect]
     Active Substance: MIRTAZAPINE
     Dosage: 2 DF, QD (IN THE EVENING)
     Route: 048
     Dates: start: 20160407, end: 20160407

REACTIONS (4)
  - Dizziness [Recovered/Resolved]
  - Generalised erythema [Recovered/Resolved]
  - Fatigue [Recovered/Resolved]
  - Epilepsy [Recovered/Resolved]

NARRATIVE: CASE EVENT DATE: 20160406
